FAERS Safety Report 16890575 (Version 3)
Quarter: 2019Q4

REPORT INFORMATION
  Report Type: Spontaneous
  Country: US (occurrence: US)
  Receive Date: 20191007
  Receipt Date: 20191016
  Transmission Date: 20200122
  Serious: No
  Sender: FDA-Public Use
  Company Number: US-PFIZER INC-2016262592

PATIENT
  Age: 64 Year
  Sex: Female
  Weight: 107.5 kg

DRUGS (29)
  1. RANITIDINE HCL [Concomitant]
     Active Substance: RANITIDINE HYDROCHLORIDE
     Dosage: 150 MG, 1X/DAY
     Route: 048
     Dates: start: 20161202
  2. ATORVASTATIN CALCIUM. [Concomitant]
     Active Substance: ATORVASTATIN CALCIUM
     Dosage: 20 MG, 1X/DAY (TAKE 1 TABLET EVERY DAY AT BEDTIME)
     Route: 048
  3. ALBUTEROL SULFATE. [Concomitant]
     Active Substance: ALBUTEROL SULFATE
     Dosage: 3 ML, AS NEEDED ( 3 ML AS NEEDED INHALATION EVERY 6 HRS)
     Route: 045
     Dates: start: 20160801
  4. GLIPIZIDE. [Concomitant]
     Active Substance: GLIPIZIDE
     Indication: DIABETES MELLITUS
     Dosage: 1000 MG, 2X/DAY
     Route: 048
     Dates: start: 2000
  5. TRAMADOL HCL [Concomitant]
     Active Substance: TRAMADOL HYDROCHLORIDE
     Dosage: 50 MG, AS NEEDED (1 TABLET AS NEEDED ORALLY EVERY 8 HRS )
     Route: 048
  6. LYRICA [Suspect]
     Active Substance: PREGABALIN
     Dosage: 150 MG, 3X/DAY
     Route: 048
  7. IBUPROFEN. [Concomitant]
     Active Substance: IBUPROFEN
     Indication: PAIN
  8. TORSEMIDE. [Concomitant]
     Active Substance: TORSEMIDE
     Dosage: 20 MG, 1X/DAY
     Route: 048
  9. SPIRONOLACTONE. [Concomitant]
     Active Substance: SPIRONOLACTONE
     Dosage: 25 MG, 1X/DAY
     Route: 048
  10. MAGNESIUM OXIDE. [Concomitant]
     Active Substance: MAGNESIUM OXIDE
     Dosage: 400 MG, 2X/DAY
     Route: 048
     Dates: start: 20160809
  11. LAMICTAL [Concomitant]
     Active Substance: LAMOTRIGINE
     Dosage: 100 MG, 3X/DAY
     Route: 048
  12. METOPROLOL TARTRATE. [Concomitant]
     Active Substance: METOPROLOL TARTRATE
     Dosage: 25 MG, 2X/DAY (1 TABLET WITH FOOD ORALLY TWICE A DAY)
     Route: 048
     Dates: start: 20161102
  13. NYSTATINE [Concomitant]
     Dosage: UNK, 2X/DAY(100000 UNIT/GM POWDER, SIG: 1 TO AFFECTED AREA EXTERNALLY TWICE A DAY )
     Dates: start: 20160607
  14. LYRICA [Suspect]
     Active Substance: PREGABALIN
     Indication: NEUROPATHY PERIPHERAL
     Dosage: 75 MG, 2X/DAY
     Route: 048
  15. ASA [Concomitant]
     Active Substance: ASPIRIN
     Dosage: 81 MG, UNK
  16. NIASPAN [Concomitant]
     Active Substance: NIACIN
     Dosage: 500 MG, 1X/DAY(1 TABLET AT BEDTIME ORALLY ONCE A DAY)
     Route: 048
  17. PLAVIX [Concomitant]
     Active Substance: CLOPIDOGREL BISULFATE
     Dosage: 75 MG, 1X/DAY
     Route: 048
  18. LYRICA [Suspect]
     Active Substance: PREGABALIN
     Dosage: 100 MG, 3X/DAY
     Route: 048
  19. VIIBRYD [Concomitant]
     Active Substance: VILAZODONE HYDROCHLORIDE
     Dosage: 40 MG, 1X/DAY (TAKE ONE TABLET BY MOUTH EVERY DAY WITH FOOD)
     Route: 048
  20. DIAZEPAM. [Concomitant]
     Active Substance: DIAZEPAM
     Dosage: 5 MG, AS NEEDED (TAKE ONE TABLET BY MOUTH THREE TIMES A DAY AS NEEDED)
     Route: 048
  21. METOLAZONE. [Concomitant]
     Active Substance: METOLAZONE
     Dosage: 5 MG, 1X/DAY
     Route: 048
     Dates: start: 20160907
  22. FLUOXETINE HCL [Concomitant]
     Active Substance: FLUOXETINE HYDROCHLORIDE
     Dosage: 20 MG, 1X/DAY (IN THE MORNING ORALLY ONCE A DAY)
     Route: 048
  23. NYSTATIN. [Concomitant]
     Active Substance: NYSTATIN
     Dosage: UNK, 2X/DAY ( 1 APPLICATION TO AFFECTED AREA EXTERNALLY TWICE A DAY)
     Dates: start: 20160607
  24. IBUPROFEN. [Concomitant]
     Active Substance: IBUPROFEN
     Indication: NEUROPATHY PERIPHERAL
     Dosage: 600 MG, 3X/DAY (EVERY 8 HOURS)
     Route: 048
     Dates: start: 201612, end: 20170102
  25. VALACICLOVIR HCL [Concomitant]
     Active Substance: VALACYCLOVIR HYDROCHLORIDE
     Dosage: 500 MG, 1X/DAY
     Route: 048
  26. ZOLPIDEM TARTRATE. [Concomitant]
     Active Substance: ZOLPIDEM TARTRATE
     Dosage: 10 MG, 1X/DAY (TAKE ONE TABLET BY MOUTH AT BEDTIME)
     Route: 048
  27. ARIPIPRAZOLE. [Concomitant]
     Active Substance: ARIPIPRAZOLE
     Dosage: 20 MG, 1X/DAY
     Route: 048
  28. METFORMIN HCL [Concomitant]
     Active Substance: METFORMIN HYDROCHLORIDE
     Dosage: 1000 MG, 2X/DAY (TAKE ONE TABLET BY MOUTH TWICE DAILY TWICE A DAY ORALLY 30)
     Route: 048
  29. NEXIUM [Concomitant]
     Active Substance: ESOMEPRAZOLE MAGNESIUM
     Dosage: 40 MG, 1X/DAY
     Route: 048

REACTIONS (1)
  - Pain [Not Recovered/Not Resolved]

NARRATIVE: CASE EVENT DATE: 201909
